FAERS Safety Report 5921144-9 (Version None)
Quarter: 2008Q4

REPORT INFORMATION
  Report Type: 
  Country: None (occurrence: None)
  Receive Date: 20081016
  Receipt Date: 20081006
  Transmission Date: 20090506
  Serious: Yes (Other)
  Sender: FDA-Public Use
  Company Number: FR-SANOFI-SYNTHELABO-A02200802975

PATIENT
  Age: 50 Year
  Sex: Female
  Weight: 80 kg

DRUGS (1)
  1. ZOLPIDEM [Suspect]
     Indication: DRUG USE FOR UNKNOWN INDICATION
     Route: 048
     Dates: start: 20080912, end: 20080913

REACTIONS (6)
  - ABDOMINAL PAIN [None]
  - ACCIDENTAL OVERDOSE [None]
  - HEADACHE [None]
  - MALAISE [None]
  - MEDICATION ERROR [None]
  - SOMNOLENCE [None]
